FAERS Safety Report 9189987 (Version 1)
Quarter: 2013Q1

REPORT INFORMATION
  Report Type: Spontaneous
  Country: HR (occurrence: None)
  Receive Date: 20130322
  Receipt Date: 20130322
  Transmission Date: 20140127
  Serious: Yes (Hospitalization)
  Sender: FDA-Public Use
  Company Number: HR-ALKEM-000021

PATIENT
  Age: 53 Year
  Sex: Female

DRUGS (1)
  1. QUETIAPINE (QUETIAPINE) (QUETIAPINE) [Suspect]
     Indication: PSYCHOTIC DISORDER
     Route: 048

REACTIONS (2)
  - Acute generalised exanthematous pustulosis [None]
  - Blood pressure increased [None]
